FAERS Safety Report 13305825 (Version 1)
Quarter: 2017Q1

REPORT INFORMATION
  Report Type: Spontaneous
  Country: None (occurrence: US)
  Receive Date: 20170308
  Receipt Date: 20170308
  Transmission Date: 20170428
  Serious: Yes (Hospitalization)
  Sender: FDA-Public Use
  Company Number: None

PATIENT
  Age: 15 Year
  Sex: Female
  Weight: 56.1 kg

DRUGS (12)
  1. METHOTREXATE. [Suspect]
     Active Substance: METHOTREXATE
     Dates: end: 20170225
  2. VINCRISTINE SULFATE. [Suspect]
     Active Substance: VINCRISTINE SULFATE
     Dates: end: 20170221
  3. CYCLOPHOSPHAMIDE. [Suspect]
     Active Substance: CYCLOPHOSPHAMIDE
     Dates: end: 20160930
  4. PREDNISONE. [Suspect]
     Active Substance: PREDNISONE
     Dates: end: 20170225
  5. CYTARABINE. [Suspect]
     Active Substance: CYTARABINE
     Dates: end: 20160225
  6. DEXAMETHASONE. [Suspect]
     Active Substance: DEXAMETHASONE
     Dates: end: 20160912
  7. ETOPOSIDE (VP-16) [Suspect]
     Active Substance: ETOPOSIDE
     Dates: end: 20160930
  8. ONCASPAR [Suspect]
     Active Substance: PEGASPARGASE
     Dates: end: 20170227
  9. ERWINIA ASPARAGINASE [Suspect]
     Active Substance: ASPARAGINASE ERWINIA CHRYSANTHEMI
     Dates: end: 20161205
  10. DAUNORUBICIN [Suspect]
     Active Substance: DAUNORUBICIN
     Dates: end: 20160317
  11. MERCAPTOPURINE. [Suspect]
     Active Substance: MERCAPTOPURINE
     Dates: end: 20170227
  12. DOXORUBICIN HYDROCHLORIDE. [Suspect]
     Active Substance: DOXORUBICIN HYDROCHLORIDE
     Dates: end: 20160905

REACTIONS (14)
  - Alanine aminotransferase increased [None]
  - International normalised ratio increased [None]
  - Ultrasound liver abnormal [None]
  - Hepatitis A antibody positive [None]
  - Fatigue [None]
  - Blood bilirubin increased [None]
  - Abdominal tenderness [None]
  - Malaise [None]
  - Haemoglobin decreased [None]
  - Chromaturia [None]
  - Aspartate aminotransferase increased [None]
  - Gallbladder disorder [None]
  - Bilirubin conjugated increased [None]
  - Neutropenia [None]

NARRATIVE: CASE EVENT DATE: 20170228
